FAERS Safety Report 6179067-9 (Version None)
Quarter: 2009Q2

REPORT INFORMATION
  Report Type: 
  Country: None (occurrence: None)
  Receive Date: 20090505
  Receipt Date: 20090424
  Transmission Date: 20091009
  Serious: Yes (Other)
  Sender: FDA-Public Use
  Company Number: PHHY2009JP14655

PATIENT
  Age: 44 Year
  Sex: Female

DRUGS (1)
  1. AMN107 AMN+CAP [Suspect]
     Indication: CHRONIC MYELOID LEUKAEMIA
     Dosage: 800 MG DAILY
     Route: 048
     Dates: start: 20090407, end: 20090409

REACTIONS (4)
  - BLOOD BILIRUBIN INCREASED [None]
  - HYPERKALAEMIA [None]
  - NAUSEA [None]
  - RENAL DISORDER [None]
